FAERS Safety Report 7406433-3 (Version None)
Quarter: 2011Q2

REPORT INFORMATION
  Report Type: 
  Country: None (occurrence: None)
  Receive Date: 20110411
  Receipt Date: 20110405
  Transmission Date: 20111010
  Serious: Yes (Other)
  Sender: FDA-Public Use
  Company Number: PHHO2011AU05907

PATIENT
  Sex: Female
  Weight: 70 kg

DRUGS (1)
  1. FTY 720 [Suspect]
     Dosage: 0.5 MG, QD
     Route: 048
     Dates: start: 20100308

REACTIONS (1)
  - BASAL CELL CARCINOMA [None]
